FAERS Safety Report 9011508 (Version 1)
Quarter: 2013Q1

REPORT INFORMATION
  Report Type: Spontaneous
  Country: US (occurrence: US)
  Receive Date: 20130108
  Receipt Date: 20130108
  Transmission Date: 20140127
  Serious: Yes (Hospitalization, Other)
  Sender: FDA-Public Use
  Company Number: PHEH2012US022678

PATIENT
  Age: 49 Year
  Sex: Male
  Weight: 180 kg

DRUGS (7)
  1. CLOZAPINE [Suspect]
     Indication: SCHIZOAFFECTIVE DISORDER
     Dosage: 350 MG, UNK
  2. CLOZAPINE [Suspect]
     Dosage: 150 MG, UNK
     Dates: start: 20121114
  3. CLOZAPINE [Suspect]
     Dosage: 250 MG, UNK
  4. CYMBALTA [Concomitant]
     Dosage: 120 MG
  5. CYMBALTA [Concomitant]
     Dosage: 60 MG, UNK
  6. GEODON [Concomitant]
     Dosage: 240 MG, UNK
  7. GEODON [Concomitant]
     Dosage: 180 MG, UNK

REACTIONS (3)
  - Rhabdomyolysis [Recovered/Resolved]
  - Blood creatine phosphokinase increased [Recovered/Resolved]
  - Fall [Unknown]
